FAERS Safety Report 4404199-2 (Version None)
Quarter: 2004Q3

REPORT INFORMATION
  Report Type: 
  Country: None (occurrence: None)
  Receive Date: 20040719
  Receipt Date: 20040713
  Transmission Date: 20050211
  Serious: Yes (Death)
  Sender: FDA-Public Use
  Company Number: MK200407-0091-1

PATIENT
  Age: 53 Year
  Sex: Female

DRUGS (2)
  1. ANAFRANIL CAP [Suspect]
     Dosage: 04/13/??-05/01/??
  2. ELECTROLYTES [Concomitant]

REACTIONS (9)
  - CARDIAC ARREST [None]
  - DEHYDRATION [None]
  - HAEMATURIA [None]
  - MUSCULOSKELETAL STIFFNESS [None]
  - PULMONARY EMBOLISM [None]
  - PULMONARY THROMBOSIS [None]
  - PYREXIA [None]
  - RESPIRATORY ARREST [None]
  - SUDDEN DEATH [None]
